FAERS Safety Report 6313844-6 (Version None)
Quarter: 2009Q3

REPORT INFORMATION
  Report Type: 
  Country: None (occurrence: None)
  Receive Date: 20090818
  Receipt Date: 20090804
  Transmission Date: 20100115
  Serious: Yes (Hospitalization)
  Sender: FDA-Public Use
  Company Number: ES-MYLANLABS-2009S1013911

PATIENT
  Age: 6 Year
  Sex: Female

DRUGS (3)
  1. RISPERIDONE [Suspect]
     Indication: ABNORMAL BEHAVIOUR
  2. RISPERIDONE [Suspect]
     Indication: INSOMNIA
  3. RISPERIDONE [Suspect]
     Indication: PSYCHOMOTOR HYPERACTIVITY

REACTIONS (1)
  - BENIGN INTRACRANIAL HYPERTENSION [None]
